FAERS Safety Report 20533915 (Version 2)
Quarter: 2022Q1

REPORT INFORMATION
  Report Type: Spontaneous
  Country: CA (occurrence: None)
  Receive Date: 20220301
  Receipt Date: 20220307
  Transmission Date: 20220423
  Serious: Yes (Hospitalization)
  Sender: FDA-Public Use
  Company Number: CA-ROCHE-3034917

PATIENT
  Age: 59 Year
  Sex: Female

DRUGS (10)
  1. ACTEMRA [Suspect]
     Active Substance: TOCILIZUMAB
     Indication: Rheumatoid arthritis
     Route: 058
  2. ARAVA [Suspect]
     Active Substance: LEFLUNOMIDE
     Indication: Rheumatoid arthritis
     Route: 065
  3. BACTRIM [Suspect]
     Active Substance: SULFAMETHOXAZOLE\TRIMETHOPRIM
     Indication: Product used for unknown indication
     Route: 065
  4. METHOTREXATE [Suspect]
     Active Substance: METHOTREXATE
     Indication: Product used for unknown indication
     Route: 065
  5. ALPRAZOLAM [Concomitant]
     Active Substance: ALPRAZOLAM
  6. FOLIC ACID [Concomitant]
     Active Substance: FOLIC ACID
  7. HYDROXYCHLOROQUINE SULFATE [Concomitant]
     Active Substance: HYDROXYCHLOROQUINE SULFATE
  8. MELOXICAM [Concomitant]
     Active Substance: MELOXICAM
  9. PENTAMIDINE [Concomitant]
     Active Substance: PENTAMIDINE
  10. PREDNISONE [Concomitant]
     Active Substance: PREDNISONE

REACTIONS (5)
  - Drug hypersensitivity [Unknown]
  - Immunodeficiency [Unknown]
  - Mouth ulceration [Unknown]
  - Pneumonia [Unknown]
  - Therapy non-responder [Unknown]
